FAERS Safety Report 8534221-3 (Version None)
Quarter: 2012Q3

REPORT INFORMATION
  Report Type: 
  Country: None (occurrence: None)
  Receive Date: 20120724
  Receipt Date: 20120719
  Transmission Date: 20120928
  Serious: No
  Sender: FDA-Public Use
  Company Number: US-BAYER-2012-073275

PATIENT
  Age: 25 Year
  Sex: Female

DRUGS (3)
  1. DIFLUCAN [Concomitant]
  2. MIRENA [Suspect]
     Indication: CONTRACEPTION
     Dosage: 20 ?G/D, CONT
     Route: 015
     Dates: start: 20120717
  3. MIRENA [Suspect]
     Indication: ENDOMETRIOSIS

REACTIONS (4)
  - SYNCOPE [None]
  - VAGINAL INFLAMMATION [None]
  - VULVOVAGINAL PRURITUS [None]
  - VULVOVAGINAL PAIN [None]
